FAERS Safety Report 13619848 (Version 2)
Quarter: 2017Q2

REPORT INFORMATION
  Report Type: Spontaneous
  Country: US (occurrence: US)
  Receive Date: 20170606
  Receipt Date: 20170609
  Transmission Date: 20170830
  Serious: Yes (Death, Other)
  Sender: FDA-Public Use
  Company Number: US-009507513-1705USA015989

PATIENT
  Sex: Female

DRUGS (1)
  1. KEYTRUDA [Suspect]
     Active Substance: PEMBROLIZUMAB
     Indication: BRAIN NEOPLASM MALIGNANT

REACTIONS (3)
  - Adverse reaction [Unknown]
  - Product used for unknown indication [Unknown]
  - Death [Fatal]

NARRATIVE: CASE EVENT DATE: 20160531
